FAERS Safety Report 9922416 (Version 1)
Quarter: 2014Q1

REPORT INFORMATION
  Report Type: Spontaneous
  Country: US (occurrence: None)
  Receive Date: 20140224
  Receipt Date: 20140224
  Transmission Date: 20141002
  Serious: Yes (Disabling)
  Sender: FDA-Public Use
  Company Number: None

PATIENT
  Age: 44 Year
  Sex: Female
  Weight: 68.04 kg

DRUGS (2)
  1. CLONAZEPAM [Suspect]
     Indication: INSOMNIA
     Dosage: 2 PILLS FIVE TIMES A DAY
     Route: 048
  2. CLONAZEPAM [Suspect]
     Indication: ANXIETY
     Dosage: 2 PILLS FIVE TIMES A DAY
     Route: 048

REACTIONS (20)
  - Cognitive disorder [None]
  - Amnesia [None]
  - Emotional disorder [None]
  - Drug withdrawal syndrome [None]
  - Tinnitus [None]
  - Panic attack [None]
  - Muscle spasms [None]
  - Migraine [None]
  - Depersonalisation [None]
  - Derealisation [None]
  - Insomnia [None]
  - Anxiety [None]
  - Weight decreased [None]
  - Vision blurred [None]
  - Tooth disorder [None]
  - Completed suicide [None]
  - Nightmare [None]
  - Paraesthesia [None]
  - Depression [None]
  - Condition aggravated [None]
